FAERS Safety Report 9759644 (Version 2)
Quarter: 2013Q4

REPORT INFORMATION
  Report Type: Spontaneous
  Country: US (occurrence: US)
  Receive Date: 20131216
  Receipt Date: 20131216
  Transmission Date: 20140711
  Serious: No
  Sender: FDA-Public Use
  Company Number: US-GILEAD-2010-0028098

PATIENT
  Sex: Female
  Weight: 92.08 kg

DRUGS (6)
  1. LETAIRIS [Suspect]
     Indication: PULMONARY ARTERIAL HYPERTENSION
     Route: 048
     Dates: start: 20091106
  2. SINGULAIR [Concomitant]
  3. ZYPREXA [Concomitant]
  4. NEFAZODONE [Concomitant]
  5. LITHIUM [Concomitant]
  6. BUPROPION [Concomitant]

REACTIONS (1)
  - Blood creatinine increased [Unknown]
